FAERS Safety Report 11186203 (Version 1)
Quarter: 2015Q2

REPORT INFORMATION
  Report Type: Spontaneous
  Country: US (occurrence: US)
  Receive Date: 20150612
  Receipt Date: 20150612
  Transmission Date: 20150821
  Serious: Yes (Hospitalization)
  Sender: FDA-Public Use
  Company Number: US-ABBVIE-15P-163-1404549-00

PATIENT

DRUGS (2)
  1. ANDROGEL [Suspect]
     Active Substance: TESTOSTERONE
     Indication: ANDROGEN REPLACEMENT THERAPY
     Route: 061
     Dates: start: 20100521, end: 201306
  2. FORTESTA [Suspect]
     Active Substance: TESTOSTERONE
     Indication: ANDROGEN REPLACEMENT THERAPY
     Route: 065
     Dates: start: 20100521, end: 201306

REACTIONS (4)
  - Myocardial infarction [Unknown]
  - Economic problem [Unknown]
  - Angina pectoris [Unknown]
  - Coronary artery thrombosis [Unknown]

NARRATIVE: CASE EVENT DATE: 20130603
